FAERS Safety Report 18911404 (Version 3)
Quarter: 2021Q3

REPORT INFORMATION
  Report Type: Report from Study
  Country: US (occurrence: US)
  Receive Date: 20210218
  Receipt Date: 20210712
  Transmission Date: 20211014
  Serious: Yes (Hospitalization, Other)
  Sender: FDA-Public Use
  Company Number: NVSC2021US032951

PATIENT
  Age: 44 Year
  Sex: Female
  Weight: 43.7 kg

DRUGS (3)
  1. KESIMPTA [Suspect]
     Active Substance: OFATUMUMAB
     Dosage: 120 MG
     Route: 058
     Dates: start: 20210210
  2. KESIMPTA [Suspect]
     Active Substance: OFATUMUMAB
     Indication: MULTIPLE SCLEROSIS
     Dosage: 20 MG, QW
     Route: 030
     Dates: start: 20210209
  3. MAYZENT [Suspect]
     Active Substance: SIPONIMOD
     Indication: PRODUCT USED FOR UNKNOWN INDICATION
     Dosage: UNK
     Route: 065

REACTIONS (12)
  - Fall [Unknown]
  - Metabolic encephalopathy [Recovered/Resolved with Sequelae]
  - Chills [Unknown]
  - Dysphagia [Recovered/Resolved with Sequelae]
  - Hypokinesia [Unknown]
  - Dysarthria [Recovered/Resolved with Sequelae]
  - Muscular weakness [Recovered/Resolved]
  - Headache [Unknown]
  - Paresis [Recovered/Resolved with Sequelae]
  - Confusional state [Recovered/Resolved with Sequelae]
  - Coordination abnormal [Recovered/Resolved with Sequelae]
  - Cold sweat [Unknown]

NARRATIVE: CASE EVENT DATE: 202004
